FAERS Safety Report 7852601-6 (Version None)
Quarter: 2011Q4

REPORT INFORMATION
  Report Type: 
  Country: None (occurrence: None)
  Receive Date: 20111026
  Receipt Date: 20111024
  Transmission Date: 20120403
  Serious: Yes (Hospitalization)
  Sender: FDA-Public Use
  Company Number: US-GLAXOSMITHKLINE-A0939279A

PATIENT
  Age: 72 Year
  Sex: Male

DRUGS (12)
  1. PROMISEB [Concomitant]
  2. NASONEX [Concomitant]
  3. FEXOFENADINE [Concomitant]
  4. AMANTADINE HCL [Concomitant]
  5. REQUIP [Concomitant]
  6. GLUCOSAMINE [Concomitant]
  7. CLONAZEPAM [Concomitant]
  8. STALEVO 100 [Concomitant]
  9. CIALIS [Concomitant]
  10. REQUIP XL [Suspect]
     Indication: PARKINSON'S DISEASE
     Dosage: 2MG PER DAY
     Route: 048
     Dates: start: 20110620, end: 20110705
  11. MULTI-VITAMIN [Concomitant]
  12. CALCIUM + VITAMIN D [Concomitant]

REACTIONS (23)
  - ASPARTATE AMINOTRANSFERASE INCREASED [None]
  - ILL-DEFINED DISORDER [None]
  - FATIGUE [None]
  - LIVER FUNCTION TEST ABNORMAL [None]
  - RENAL FUNCTION TEST ABNORMAL [None]
  - FLUID RETENTION [None]
  - ARTHRALGIA [None]
  - DEHYDRATION [None]
  - HYPOKINESIA [None]
  - URINARY TRACT INFECTION [None]
  - APHASIA [None]
  - GRANULOCYTOSIS [None]
  - FIBRIN DEGRADATION PRODUCTS INCREASED [None]
  - SWELLING [None]
  - ABASIA [None]
  - DYSTONIA [None]
  - BLOOD UREA DECREASED [None]
  - BLOOD AMYLASE INCREASED [None]
  - WOUND [None]
  - ASTHENIA [None]
  - WEIGHT DECREASED [None]
  - LABORATORY TEST ABNORMAL [None]
  - RENAL FAILURE [None]
